FAERS Safety Report 7468336-8 (Version None)
Quarter: 2011Q2

REPORT INFORMATION
  Report Type: 
  Country: None (occurrence: None)
  Receive Date: 20110509
  Receipt Date: 20110502
  Transmission Date: 20111010
  Serious: Yes (Hospitalization, Other)
  Sender: FDA-Public Use
  Company Number: BR-PFIZER INC-2011091725

PATIENT
  Age: 35 Year
  Sex: Male
  Weight: 93 kg

DRUGS (6)
  1. PURAN T4 [Concomitant]
     Indication: HYPOTHYROIDISM
     Dosage: 50 UG, UNK
     Dates: start: 20070101
  2. TORVAL [Concomitant]
     Indication: SCHIZOAFFECTIVE DISORDER
  3. GEODON [Suspect]
     Dosage: 40 MG, AFTER LUNCH
     Route: 048
     Dates: end: 20110401
  4. TORVAL [Concomitant]
     Indication: BIPOLAR DISORDER
     Dosage: UNK
     Dates: start: 20101101
  5. GEODON [Suspect]
     Indication: SCHIZOPHRENIA, PARANOID TYPE
     Dosage: 40 MG AFTER LUNCH AND AFTER DINNER
     Route: 048
     Dates: start: 20101101
  6. GEODON [Suspect]
     Dosage: 40 MG, AFTER BREAKFAST AND 40MG AFTER LUNCH
     Route: 048
     Dates: start: 20110401

REACTIONS (9)
  - MANIA [None]
  - AGGRESSION [None]
  - SOMNOLENCE [None]
  - AGITATION [None]
  - SCHIZOPHRENIA [None]
  - INCORRECT DOSE ADMINISTERED [None]
  - PSYCHOTIC DISORDER [None]
  - TREMOR [None]
  - INSOMNIA [None]
